FAERS Safety Report 12707999 (Version 1)
Quarter: 2016Q3

REPORT INFORMATION
  Report Type: Spontaneous
  Country: US (occurrence: US)
  Receive Date: 20160901
  Receipt Date: 20160901
  Transmission Date: 20161109
  Serious: No
  Sender: FDA-Public Use
  Company Number: US-B.I. PHARMACEUTICALS,INC./RIDGEFIELD-2016-BI-55453BP

PATIENT
  Sex: Female

DRUGS (2)
  1. GILOTRIF [Suspect]
     Active Substance: AFATINIB
     Indication: NON-SMALL CELL LUNG CANCER
     Dosage: 30 MG
     Route: 048
     Dates: start: 201606
  2. MAGNESIUM [Concomitant]
     Active Substance: MAGNESIUM
     Indication: GITELMAN^S SYNDROME
     Route: 065
     Dates: start: 2003, end: 201608

REACTIONS (1)
  - Blood magnesium increased [Not Recovered/Not Resolved]

NARRATIVE: CASE EVENT DATE: 201608
